FAERS Safety Report 6040894-X (Version None)
Quarter: 2009Q1

REPORT INFORMATION
  Report Type: 
  Country: None (occurrence: None)
  Receive Date: 20090116
  Receipt Date: 20080805
  Transmission Date: 20090719
  Serious: No
  Sender: FDA-Public Use
  Company Number: US-BRISTOL-MYERS SQUIBB COMPANY-14237408

PATIENT
  Age: 28 Year
  Sex: Male
  Weight: 88 kg

DRUGS (8)
  1. ABILIFY [Suspect]
     Indication: BIPOLAR DISORDER
     Dosage: TAKEN FIRST DOSE BEFORE BEDTIME
     Route: 048
     Dates: start: 20080618, end: 20080101
  2. ABILIFY [Suspect]
     Indication: ANGER
     Dosage: TAKEN FIRST DOSE BEFORE BEDTIME
     Route: 048
     Dates: start: 20080618, end: 20080101
  3. ABILIFY [Suspect]
     Indication: AGITATION
     Dosage: TAKEN FIRST DOSE BEFORE BEDTIME
     Route: 048
     Dates: start: 20080618, end: 20080101
  4. DOXYCYCLINE [Concomitant]
  5. CLINDAMYCIN HCL [Concomitant]
     Dosage: FORM-GEL
     Route: 061
  6. PAROXETINE HCL [Concomitant]
  7. ADDERALL XR 20 [Concomitant]
  8. MULTI-VITAMIN [Concomitant]

REACTIONS (7)
  - FATIGUE [None]
  - HYPERSOMNIA [None]
  - INSOMNIA [None]
  - LOSS OF CONTROL OF LEGS [None]
  - MOOD SWINGS [None]
  - MUSCLE TWITCHING [None]
  - RESTLESSNESS [None]
